FAERS Safety Report 16589347 (Version 2)
Quarter: 2019Q3

REPORT INFORMATION
  Report Type: Spontaneous
  Country: FR (occurrence: FR)
  Receive Date: 20190718
  Receipt Date: 20190919
  Transmission Date: 20191004
  Serious: Yes (Congenital Anomaly)
  Sender: FDA-Public Use
  Company Number: FR-TEVA-2019-FR-1078139

PATIENT
  Sex: Male

DRUGS (4)
  1. ASPEGIC ADULTES 1000 MG, POUDRE POUR SOLUTION BUVABLE EN SACHET-DOSE [Suspect]
     Active Substance: ASPIRIN DL-LYSINE
     Indication: INFLUENZA
     Dosage: 2 DOSAGE FORMS DAILY; ASPEGIC ADULTES 1000 MG, POUDRE POUR SOLUTION BUVABLE EN SACHET-DOSE
     Route: 064
     Dates: start: 20190321, end: 20190322
  2. OROZAMUDOL 50 MG, COMPRIME ORODISPERSIBLE [Suspect]
     Active Substance: TRAMADOL HYDROCHLORIDE
     Indication: SINUSITIS
     Dosage: 2 DOSAGE FORMS DAILY;
     Route: 064
     Dates: start: 201903, end: 201903
  3. TAMIFLU [Suspect]
     Active Substance: OSELTAMIVIR PHOSPHATE
     Indication: INFLUENZA
     Route: 064
     Dates: start: 20190320, end: 20190325
  4. AMOXICILLINE [Suspect]
     Active Substance: AMOXICILLIN
     Indication: INFLUENZA
     Dosage: 3 GRAM DAILY;
     Route: 064
     Dates: start: 20190322, end: 20190329

REACTIONS (2)
  - Congenital heart valve disorder [Not Recovered/Not Resolved]
  - Cleft lip and palate [Not Recovered/Not Resolved]

NARRATIVE: CASE EVENT DATE: 20190519
